FAERS Safety Report 9682971 (Version 3)
Quarter: 2013Q4

REPORT INFORMATION
  Report Type: Spontaneous
  Country: JP (occurrence: JP)
  Receive Date: 20131112
  Receipt Date: 20131122
  Transmission Date: 20140711
  Serious: Yes (Hospitalization, Other)
  Sender: FDA-Public Use
  Company Number: JP-EISAI INC-E2020-13069-SPO-JP

PATIENT
  Age: 86 Year
  Sex: Male

DRUGS (4)
  1. ARICEPT [Suspect]
     Indication: DEMENTIA ALZHEIMER^S TYPE
     Route: 048
     Dates: start: 20131019, end: 2013
  2. AMLODIN [Concomitant]
     Indication: HYPERTENSION
     Dosage: UNKNOWN
     Route: 048
  3. HARNAL [Concomitant]
     Indication: DYSURIA
     Dosage: UNKNOWN
     Route: 048
  4. VESICARE [Concomitant]
     Indication: DYSURIA
     Dosage: UNKNOWN
     Route: 048

REACTIONS (2)
  - Delirium [Unknown]
  - Cerebral infarction [Unknown]
